FAERS Safety Report 14574221 (Version 1)
Quarter: 2018Q1

REPORT INFORMATION
  Report Type: Spontaneous
  Country: US (occurrence: US)
  Receive Date: 20180226
  Receipt Date: 20180226
  Transmission Date: 20180509
  Serious: Yes (Hospitalization)
  Sender: FDA-Public Use
  Company Number: US-ACTELION-A-NJ2018-168074

PATIENT
  Age: 74 Year
  Sex: Female

DRUGS (17)
  1. VALSARTAN AND HYDROCHLOROTHIAZIDE [Concomitant]
     Active Substance: HYDROCHLOROTHIAZIDE\VALSARTAN
  2. LEVOFLOXACIN. [Concomitant]
     Active Substance: LEVOFLOXACIN
  3. TERCONAZOLE. [Concomitant]
     Active Substance: TERCONAZOLE
  4. FISH OIL [Concomitant]
     Active Substance: FISH OIL
     Dosage: 1000 MG, UNK
  5. MINERALS [Concomitant]
     Active Substance: MINERALS
  6. BUSPIRONE HCL [Concomitant]
     Active Substance: BUSPIRONE HYDROCHLORIDE
  7. CLOBETASOL PROPIONATE. [Concomitant]
     Active Substance: CLOBETASOL PROPIONATE
  8. MULTIVITAMIN [Concomitant]
     Active Substance: VITAMINS
  9. ZOLPIDEM TARTRATE. [Concomitant]
     Active Substance: ZOLPIDEM TARTRATE
  10. LEVOTHYROXINE SODIUM. [Concomitant]
     Active Substance: LEVOTHYROXINE SODIUM
  11. TRAMADOL HCL [Concomitant]
     Active Substance: TRAMADOL HYDROCHLORIDE
  12. TRACLEER [Suspect]
     Active Substance: BOSENTAN
     Indication: PULMONARY HYPERTENSION
     Dosage: 125 MG, UNK
     Route: 048
  13. LATANOPROST. [Concomitant]
     Active Substance: LATANOPROST
  14. SIMVASTATIN. [Concomitant]
     Active Substance: SIMVASTATIN
  15. HYDROCHLOROTHIAZIDE. [Concomitant]
     Active Substance: HYDROCHLOROTHIAZIDE
  16. VITAMIN B12 [Concomitant]
     Active Substance: CYANOCOBALAMIN
     Dosage: 1000 MCG, UNK
  17. PANTOPRAZOLE SODIUM. [Concomitant]
     Active Substance: PANTOPRAZOLE SODIUM

REACTIONS (2)
  - Hip fracture [Unknown]
  - Hip surgery [Unknown]
